FAERS Safety Report 7321464-X (Version None)
Quarter: 2011Q1

REPORT INFORMATION
  Report Type: 
  Country: None (occurrence: None)
  Receive Date: 20110228
  Receipt Date: 20100608
  Transmission Date: 20110831
  Serious: Yes (Other)
  Sender: FDA-Public Use
  Company Number: US-PFIZER INC-2010034900

PATIENT
  Sex: Female
  Weight: 58.957 kg

DRUGS (5)
  1. AMITRIPTYLINE [Concomitant]
     Indication: SLEEP DISORDER
     Dosage: 75 MG, 1X/DAY
     Route: 048
  2. SYNTHROID [Concomitant]
     Indication: THYROID DISORDER
     Dosage: 50 UG, 1X/DAY
     Route: 048
  3. PERCOCET [Concomitant]
     Indication: LIGAMENT RUPTURE
     Dosage: UNK
  4. CALCIUM [Concomitant]
     Dosage: UNK
  5. GEODON [Suspect]
     Indication: DEPRESSION
     Dosage: 40 MG DAILY
     Route: 048
     Dates: start: 20090401

REACTIONS (3)
  - DEPRESSION [None]
  - BLOOD CHOLESTEROL INCREASED [None]
  - DRUG INEFFECTIVE FOR UNAPPROVED INDICATION [None]
